FAERS Safety Report 23421051 (Version 3)
Quarter: 2024Q2

REPORT INFORMATION
  Report Type: Report from Study
  Country: US (occurrence: US)
  Receive Date: 20240119
  Receipt Date: 20240510
  Transmission Date: 20240716
  Serious: Yes (Hospitalization)
  Sender: FDA-Public Use
  Company Number: US-TAKEDA-2024TUS000644

PATIENT
  Sex: Male
  Weight: 67.48 kg

DRUGS (2)
  1. MARIBAVIR [Suspect]
     Active Substance: MARIBAVIR
     Indication: Cytomegalovirus infection
     Dosage: 400 MILLIGRAM, BID
     Route: 048
     Dates: start: 20231219
  2. MARIBAVIR [Suspect]
     Active Substance: MARIBAVIR
     Dosage: 400 MILLIGRAM, BID
     Route: 048
     Dates: start: 20231222

REACTIONS (5)
  - Hospitalisation [Unknown]
  - Blood potassium increased [Recovering/Resolving]
  - Viral load increased [Recovering/Resolving]
  - Product use issue [Unknown]
  - Product dose omission issue [Unknown]
